FAERS Safety Report 6140317-6 (Version None)
Quarter: 2009Q2

REPORT INFORMATION
  Report Type: 
  Country: None (occurrence: None)
  Receive Date: 20090401
  Receipt Date: 20090317
  Transmission Date: 20091009
  Serious: Yes (Hospitalization)
  Sender: FDA-Public Use
  Company Number: US-GENENTECH-271254

PATIENT
  Age: 65 Year
  Sex: Male
  Weight: 78.005 kg

DRUGS (9)
  1. BEVACIZUMAB [Suspect]
     Indication: BLADDER CANCER
     Dosage: 1217 MG, Q21D
     Route: 042
     Dates: start: 20081002
  2. CISPLATIN [Suspect]
     Indication: BLADDER CANCER
     Dosage: 135 MG, Q21D
     Route: 042
     Dates: start: 20081002
  3. GEMZAR [Suspect]
     Indication: BLADDER CANCER
     Dosage: 1930 MG, UNK
     Route: 042
     Dates: start: 20081002
  4. METOPROLOL [Concomitant]
     Indication: HYPERTENSION
     Dosage: 50 MG, QD
  5. OXYCONTIN [Concomitant]
     Indication: PAIN
     Dosage: 10 MG, BID
  6. OXYCODONE HCL [Concomitant]
     Indication: PAIN
     Dosage: UNK
  7. CADUET [Concomitant]
     Indication: HYPERTENSION
     Dosage: UNK
  8. CADUET [Concomitant]
     Indication: HYPERCHOLESTEROLAEMIA
  9. ASPIRIN [Concomitant]
     Indication: THROMBOSIS
     Dosage: 81 MG, QD

REACTIONS (3)
  - PYREXIA [None]
  - SYNCOPE [None]
  - URINARY TRACT INFECTION [None]
